FAERS Safety Report 7384051-3 (Version None)
Quarter: 2011Q1

REPORT INFORMATION
  Report Type: 
  Country: None (occurrence: None)
  Receive Date: 20110330
  Receipt Date: 20110318
  Transmission Date: 20110831
  Serious: Yes (Hospitalization, Other)
  Sender: FDA-Public Use
  Company Number: PHHY2011US23514

PATIENT
  Age: 59 Year
  Sex: Male

DRUGS (5)
  1. BACLOFEN [Interacting]
     Dosage: 10 MG, Q6H
  2. TIZANIDINE [Suspect]
     Indication: MUSCLE RELAXANT THERAPY
     Dosage: 6 MG, AT BEDTIME
  3. ANTIBIOTICS [Concomitant]
  4. BACLOFEN [Interacting]
     Indication: MUSCLE RELAXANT THERAPY
     Dosage: 40 MG, Q6H
  5. BACLOFEN [Interacting]
     Dosage: UPTO 240 MG/DAY (TWO TO THREE DOSES DAILY)

REACTIONS (20)
  - EXTRAPYRAMIDAL DISORDER [None]
  - DISORIENTATION [None]
  - BLOOD CREATININE INCREASED [None]
  - HYPOTENSION [None]
  - AGITATION [None]
  - COGWHEEL RIGIDITY [None]
  - NAUSEA [None]
  - BLOOD PRESSURE INCREASED [None]
  - RENAL TUBULAR NECROSIS [None]
  - RENAL FAILURE ACUTE [None]
  - DRUG WITHDRAWAL SYNDROME [None]
  - HALLUCINATION, VISUAL [None]
  - VOMITING [None]
  - CONFUSIONAL STATE [None]
  - HYPOPHAGIA [None]
  - HEART RATE INCREASED [None]
  - DRUG INTERACTION [None]
  - INTENTIONAL DRUG MISUSE [None]
  - DELIRIUM [None]
  - PYREXIA [None]
